FAERS Safety Report 22176616 (Version 1)
Quarter: 2023Q2

REPORT INFORMATION
  Report Type: Spontaneous
  Country: US (occurrence: US)
  Receive Date: 20230405
  Receipt Date: 20230405
  Transmission Date: 20230722
  Serious: No
  Sender: FDA-Public Use
  Company Number: US-PFIZER INC-202300141617

PATIENT
  Age: 68 Year
  Sex: Female
  Weight: 64.86 kg

DRUGS (3)
  1. FENTANYL CITRATE [Suspect]
     Active Substance: FENTANYL CITRATE
     Dosage: UNK
  2. PROPOFOL [Suspect]
     Active Substance: PROPOFOL
     Dosage: UNK
  3. VERSED [Suspect]
     Active Substance: MIDAZOLAM HYDROCHLORIDE
     Dosage: UNK

REACTIONS (1)
  - Migraine [Unknown]
